FAERS Safety Report 15469820 (Version 1)
Quarter: 2018Q4

REPORT INFORMATION
  Report Type: Spontaneous
  Country: US (occurrence: US)
  Receive Date: 20181005
  Receipt Date: 20181005
  Transmission Date: 20190205
  Serious: Yes (Disabling)
  Sender: FDA-Public Use
  Company Number: PHEH2018US041506

PATIENT
  Age: 70 Year
  Sex: Female
  Weight: 72.56 kg

DRUGS (2)
  1. TIMOLOL. [Suspect]
     Active Substance: TIMOLOL
     Indication: GLAUCOMA
     Dosage: 1 GTT, BID
     Route: 047
     Dates: start: 20180630, end: 20180808
  2. TIMOLOL. [Suspect]
     Active Substance: TIMOLOL
     Dosage: 1 GTT, QD
     Route: 047

REACTIONS (2)
  - Vision blurred [Recovering/Resolving]
  - Hypermetropia [Unknown]

NARRATIVE: CASE EVENT DATE: 20180701
